FAERS Safety Report 9272092 (Version 1)
Quarter: 2013Q2

REPORT INFORMATION
  Report Type: Spontaneous
  Country: US (occurrence: US)
  Receive Date: 20130506
  Receipt Date: 20130506
  Transmission Date: 20140414
  Serious: No
  Sender: FDA-Public Use
  Company Number: US-TEVA-402637USA

PATIENT
  Sex: Female
  Weight: 66.28 kg

DRUGS (5)
  1. ACTIQ [Suspect]
     Indication: NERVE INJURY
     Dosage: 9600 MICROGRAM DAILY;
     Route: 048
  2. ACTIQ [Suspect]
     Indication: BACK INJURY
  3. FENTANYL [Suspect]
     Indication: BACK PAIN
     Route: 061
  4. ESTROPIPATE [Concomitant]
     Indication: HORMONE THERAPY
     Dosage: 5.2 MILLIGRAM DAILY;
     Route: 048
  5. METHADONE [Concomitant]
     Indication: PAIN
     Dosage: 60 MILLIGRAM DAILY;
     Route: 048

REACTIONS (2)
  - Back pain [Not Recovered/Not Resolved]
  - Off label use [Unknown]
